FAERS Safety Report 17596821 (Version 1)
Quarter: 2020Q1

REPORT INFORMATION
  Report Type: Report from Study
  Country: CO (occurrence: CO)
  Receive Date: 20200330
  Receipt Date: 20200330
  Transmission Date: 20200409
  Serious: Yes (Hospitalization, Other)
  Sender: FDA-Public Use
  Company Number: CO-ROCHE-2487493

PATIENT
  Sex: Male

DRUGS (1)
  1. TRASTUZUMAB. [Suspect]
     Active Substance: TRASTUZUMAB
     Indication: PRODUCT USED FOR UNKNOWN INDICATION
     Route: 065

REACTIONS (6)
  - Drug intolerance [Unknown]
  - Alcohol poisoning [Unknown]
  - Gait disturbance [Unknown]
  - Thirst [Unknown]
  - Asthenia [Unknown]
  - Bone pain [Unknown]
